FAERS Safety Report 4558397-8 (Version None)
Quarter: 2005Q1

REPORT INFORMATION
  Report Type: 
  Country: None (occurrence: None)
  Receive Date: 20050113
  Receipt Date: 20050107
  Transmission Date: 20050727
  Serious: Yes (Death)
  Sender: FDA-Public Use
  Company Number: 2005-00065

PATIENT
  Sex: Male

DRUGS (1)
  1. BCG - IT (CONNAUGHT), AVENTIS PASTEUR LTD., LOT NOT REP, I [Suspect]
     Indication: BLADDER CANCER
     Dosage: B. IN., BLADDER
     Dates: start: 20030416

REACTIONS (2)
  - BLADDER CANCER [None]
  - MALIGNANT NEOPLASM PROGRESSION [None]
